FAERS Safety Report 8890046 (Version 1)
Quarter: 2012Q4

REPORT INFORMATION
  Report Type: Spontaneous
  Country: US (occurrence: None)
  Receive Date: 20121105
  Receipt Date: 20121105
  Transmission Date: 20130627
  Serious: No
  Sender: FDA-Public Use
  Company Number: None

PATIENT
  Age: 49 Year
  Sex: Female
  Weight: 108.86 kg

DRUGS (2)
  1. ONFI [Suspect]
     Indication: SEIZURE
     Dosage: 10 mg 2 times daily po
     Route: 048
     Dates: start: 20121003, end: 20121028
  2. ONFI [Suspect]
     Indication: SEIZURE
     Dosage: 20 mg 2 times daily po
     Route: 048

REACTIONS (13)
  - Dysarthria [None]
  - Abasia [None]
  - Somnolence [None]
  - Dyspnoea [None]
  - Dizziness [None]
  - Constipation [None]
  - Asthenia [None]
  - Fatigue [None]
  - Irritability [None]
  - Balance disorder [None]
  - Cough [None]
  - Drooling [None]
  - Dysuria [None]
